FAERS Safety Report 13625707 (Version 1)
Quarter: 2017Q2

REPORT INFORMATION
  Report Type: Spontaneous
  Country: US (occurrence: US)
  Receive Date: 20170607
  Receipt Date: 20170607
  Transmission Date: 20170830
  Serious: No
  Sender: FDA-Public Use
  Company Number: None

PATIENT
  Age: 70 Year
  Sex: Male

DRUGS (16)
  1. SOTALOL. [Concomitant]
     Active Substance: SOTALOL
  2. VITAIN D3 [Concomitant]
  3. TYLENOL [Concomitant]
     Active Substance: ACETAMINOPHEN
  4. DULERA HFA [Concomitant]
  5. ARICEPT [Concomitant]
     Active Substance: DONEPEZIL HYDROCHLORIDE
  6. PROSCAR [Concomitant]
     Active Substance: FINASTERIDE
  7. LISINOPRIL. [Concomitant]
     Active Substance: LISINOPRIL
  8. AMPYRA [Suspect]
     Active Substance: DALFAMPRIDINE
     Indication: MULTIPLE SCLEROSIS
     Route: 048
     Dates: start: 201612
  9. LORATADINE. [Concomitant]
     Active Substance: LORATADINE
  10. ATROVENT [Concomitant]
     Active Substance: IPRATROPIUM BROMIDE
  11. AVONEX [Concomitant]
     Active Substance: INTERFERON BETA-1A
  12. METOPROLOL. [Concomitant]
     Active Substance: METOPROLOL
  13. LEVOTHYROXINE. [Concomitant]
     Active Substance: LEVOTHYROXINE
  14. MVI [Concomitant]
     Active Substance: VITAMINS
  15. CRANBERRY EXTRACT [Concomitant]
     Active Substance: CRANBERRY JUICE
  16. FLONASE [Concomitant]
     Active Substance: FLUTICASONE PROPIONATE

REACTIONS (6)
  - Blood urea increased [None]
  - Red blood cell count increased [None]
  - Haemoglobin decreased [None]
  - Mean cell haemoglobin decreased [None]
  - Haematocrit decreased [None]
  - Mean cell volume decreased [None]

NARRATIVE: CASE EVENT DATE: 20170510
